FAERS Safety Report 8273451-5 (Version None)
Quarter: 2012Q2

REPORT INFORMATION
  Report Type: 
  Country: None (occurrence: None)
  Receive Date: 20120411
  Receipt Date: 20120401
  Transmission Date: 20120825
  Serious: Yes (Other)
  Sender: FDA-Public Use
  Company Number: DZ-NOVOPROD-348901

PATIENT
  Sex: Male
  Weight: 73 kg

DRUGS (1)
  1. NOVOLOG [Suspect]
     Indication: TYPE 2 DIABETES MELLITUS
     Dosage: 14 IU, BID
     Route: 065
     Dates: start: 20120101, end: 20120201

REACTIONS (4)
  - INJECTION SITE PRURITUS [None]
  - HEADACHE [None]
  - PALPITATIONS [None]
  - INJECTION SITE ERYTHEMA [None]
